FAERS Safety Report 6177543-6 (Version None)
Quarter: 2009Q2

REPORT INFORMATION
  Report Type: 
  Country: None (occurrence: None)
  Receive Date: 20090504
  Receipt Date: 20090424
  Transmission Date: 20091009
  Serious: Yes (Other)
  Sender: FDA-Public Use
  Company Number: US-PFIZER INC-2006058014

PATIENT
  Sex: Female
  Weight: 73 kg

DRUGS (18)
  1. PROVERA [Suspect]
     Indication: HORMONE REPLACEMENT THERAPY
     Dosage: 10 MG, UNK
     Route: 048
     Dates: start: 19900101, end: 19960701
  2. PROVERA [Suspect]
     Dosage: 5 MG, UNK
     Route: 048
     Dates: start: 19980701, end: 19981201
  3. PREMARIN [Suspect]
     Indication: HORMONE REPLACEMENT THERAPY
     Dosage: 0.625 MG, UNK
     Route: 065
     Dates: start: 19900501, end: 20000101
  4. PREMARIN [Suspect]
     Indication: MENOPAUSE
  5. PREMPRO [Suspect]
     Indication: HORMONE REPLACEMENT THERAPY
     Route: 065
  6. CYCRIN [Suspect]
     Indication: MENOPAUSE
     Dosage: 5 MG, UNK
     Dates: start: 19960701, end: 19980701
  7. CYCRIN [Suspect]
     Dosage: UNK
     Dates: start: 19981201, end: 20001001
  8. ACTIVELLA [Suspect]
     Indication: MENOPAUSE
     Dosage: 1MG/0.5MG
     Dates: start: 20001001, end: 20010301
  9. PREMPHASE 14/14 [Suspect]
     Indication: MENOPAUSE
     Dosage: 0.625MG/5MG
     Dates: start: 20010301, end: 20030101
  10. MEDROXYPROGESTERONE [Suspect]
     Indication: MENOPAUSE
     Dosage: 5 MG, UNK
     Dates: start: 20000301, end: 20001201
  11. ALBUTEROL [Concomitant]
     Indication: ASTHMA
     Dosage: UNK
  12. PROZAC [Concomitant]
     Indication: DEPRESSION
     Dosage: UNK
     Dates: start: 19960101
  13. PRILOSEC [Concomitant]
     Indication: GASTROOESOPHAGEAL REFLUX DISEASE
     Dosage: UNK
     Dates: start: 19970101
  14. LIPITOR [Concomitant]
     Indication: BLOOD CHOLESTEROL INCREASED
     Dosage: 20 MG, 1X/DAY
  15. PULMICORT-100 [Concomitant]
     Indication: ASTHMA
     Dosage: UNK
     Dates: start: 20000101
  16. FORADIL [Concomitant]
     Indication: ASTHMA
     Dosage: UNK
     Dates: start: 20000101
  17. LOTREL [Concomitant]
     Indication: HYPERTENSION
     Dosage: 5/20MG
     Dates: start: 20000101
  18. ACETYLSALICYLIC ACID [Concomitant]
     Indication: ISCHAEMIC HEART DISEASE PROPHYLAXIS

REACTIONS (3)
  - BREAST CANCER FEMALE [None]
  - CATHETER SITE CELLULITIS [None]
  - HOT FLUSH [None]
